FAERS Safety Report 4832597-1 (Version None)
Quarter: 2005Q4

REPORT INFORMATION
  Report Type: 
  Country: None (occurrence: None)
  Receive Date: 20051121
  Receipt Date: 20051109
  Transmission Date: 20060501
  Serious: Yes (Death)
  Sender: FDA-Public Use
  Company Number: US-JNJFOC-20051102543

PATIENT
  Sex: Male

DRUGS (1)
  1. REMICADE [Suspect]
     Dosage: FREQUENCY: EVERY 5-6 WEEKS
     Route: 042

REACTIONS (2)
  - DEATH [None]
  - DIALYSIS [None]
